FAERS Safety Report 9619640 (Version 3)
Quarter: 2014Q4

REPORT INFORMATION
  Report Type: Report from Study
  Country: AR (occurrence: AR)
  Receive Date: 20131014
  Receipt Date: 20141125
  Transmission Date: 20150529
  Serious: Yes (Hospitalization, Other)
  Sender: FDA-Public Use
  Company Number: PHHY2013AR114726

PATIENT
  Age: 67 Year
  Sex: Female

DRUGS (3)
  1. TRILEPTAL [Suspect]
     Active Substance: OXCARBAZEPINE
     Indication: ARACHNOID CYST
     Dosage: 600 MG, QD
     Route: 048
  2. TRILEPTAL [Suspect]
     Active Substance: OXCARBAZEPINE
     Dosage: 300 MG, QD
     Route: 048
  3. DIOVAN [Suspect]
     Active Substance: VALSARTAN
     Indication: HYPERTENSION
     Dosage: 0.5 DF, BID
     Route: 048

REACTIONS (11)
  - Loss of consciousness [Unknown]
  - Malaise [Unknown]
  - Seizure [Recovered/Resolved]
  - Drug intolerance [Unknown]
  - Blood sodium decreased [Unknown]
  - Visual impairment [Not Recovered/Not Resolved]
  - Asthenia [Not Recovered/Not Resolved]
  - Blindness [Unknown]
  - Dizziness [Not Recovered/Not Resolved]
  - Maculopathy [Unknown]
  - Discomfort [Unknown]

NARRATIVE: CASE EVENT DATE: 201003
